FAERS Safety Report 18005848 (Version 1)
Quarter: 2020Q3

REPORT INFORMATION
  Report Type: Report from Study
  Country: CR (occurrence: CR)
  Receive Date: 20200710
  Receipt Date: 20200710
  Transmission Date: 20201103
  Serious: Yes (Hospitalization)
  Sender: FDA-Public Use
  Company Number: NVSC2020CR193732

PATIENT
  Age: 87 Year
  Sex: Male

DRUGS (1)
  1. VYMADA [Suspect]
     Active Substance: SACUBITRIL\VALSARTAN
     Indication: FATIGUE
     Dosage: 100 MG, QD (STARTED 5 MONTHS AGO APPROXIMATELY)
     Route: 065

REACTIONS (5)
  - Weight increased [Unknown]
  - Fatigue [Recovering/Resolving]
  - Inappropriate schedule of product administration [Unknown]
  - Fluid retention [Unknown]
  - Product use in unapproved indication [Unknown]
